FAERS Safety Report 9095308 (Version 2)
Quarter: 2013Q1

REPORT INFORMATION
  Report Type: Spontaneous
  Country: GB (occurrence: None)
  Receive Date: 20130122
  Receipt Date: 20130131
  Transmission Date: 20140127
  Serious: Yes (Other)
  Sender: FDA-Public Use
  Company Number: HRA-CDB20130006

PATIENT
  Age: 26 Year
  Sex: Female

DRUGS (1)
  1. ELLAONE [Suspect]
     Indication: POST COITAL CONTRACEPTION
     Dosage: 30 MG (30 MG , 1 IN 1 D), ORAL
     Route: 048
     Dates: start: 20121128, end: 20121128

REACTIONS (1)
  - Pregnancy after post coital contraception [None]
